FAERS Safety Report 8465715-7 (Version None)
Quarter: 2012Q2

REPORT INFORMATION
  Report Type: 
  Country: None (occurrence: None)
  Receive Date: 20120626
  Receipt Date: 20120620
  Transmission Date: 20120825
  Serious: Yes (Other)
  Sender: FDA-Public Use
  Company Number: US-BAYER-2012-062432

PATIENT
  Age: 56 Year
  Sex: Female
  Weight: 66 kg

DRUGS (6)
  1. AMITRIPTYLINE HCL [Concomitant]
     Indication: NIGHTMARE
     Dosage: 25 MG, UNK
  2. AMITRIPTYLINE HCL [Concomitant]
     Indication: SLEEP DISORDER THERAPY
  3. BEYAZ [Suspect]
     Indication: MENSTRUATION IRREGULAR
  4. AMOXICILLIN [Concomitant]
     Dosage: 500 MG, UNK
  5. GABAPENTIN [Concomitant]
     Indication: RESTLESS LEGS SYNDROME
     Dosage: 100 MG, UNK
  6. AMITRIPTYLINE HCL [Concomitant]
     Indication: ABNORMAL DREAMS

REACTIONS (1)
  - DEEP VEIN THROMBOSIS [None]
